FAERS Safety Report 8124887-4 (Version None)
Quarter: 2012Q1

REPORT INFORMATION
  Report Type: 
  Country: None (occurrence: None)
  Receive Date: 20120209
  Receipt Date: 20120203
  Transmission Date: 20120608
  Serious: Yes (Death, Other)
  Sender: FDA-Public Use
  Company Number: US-PFIZER INC-2012008062

PATIENT
  Sex: Female

DRUGS (11)
  1. REVATIO [Suspect]
     Indication: PULMONARY HYPERTENSION
     Dosage: 20 MG, 1 TAB 3X/DAY
     Dates: start: 20110301, end: 20110724
  2. ASCORBIC ACID [Concomitant]
     Dosage: 1000 MG, 1X/DAY
  3. FISH OIL [Concomitant]
     Dosage: 1000 MG, 1X/DAY
  4. NEXIUM [Concomitant]
     Dosage: 40 MG, 1X/DAY
  5. LASIX [Concomitant]
     Dosage: 20 MG, 3X/DAY
  6. AZATHIOPRINE [Concomitant]
     Dosage: 50 MG, 3X/DAY
  7. AMLODIPINE/VALSARTAN [Concomitant]
     Dosage: 10/160MG 1X/DAY
  8. IPRATROPIUM [Concomitant]
     Dosage: 0.02 %, 2.5 ML 4X/DAY
  9. SITAGLIPTIN AND METFORMIN HYDROCHLORIDE [Concomitant]
     Dosage: 50/100MG, 2X/DAY
  10. SPIRONOLACTONE [Concomitant]
     Dosage: 25 MG, 3X/DAY
  11. CITALOPRAM [Concomitant]
     Dosage: 20 MG, 1X/DAY

REACTIONS (4)
  - DISEASE PROGRESSION [None]
  - ACUTE RESPIRATORY FAILURE [None]
  - PULMONARY ARTERIAL HYPERTENSION [None]
  - PANCYTOPENIA [None]
